FAERS Safety Report 15824972 (Version 3)
Quarter: 2019Q1

REPORT INFORMATION
  Report Type: Report from Study
  Country: FR (occurrence: FR)
  Receive Date: 20190115
  Receipt Date: 20190307
  Transmission Date: 20190417
  Serious: No
  Sender: FDA-Public Use
  Company Number: FR-ROCHE-2242808

PATIENT
  Age: 52 Year
  Sex: Male
  Weight: 83.8 kg

DRUGS (11)
  1. ATEZOLIZUMAB. [Suspect]
     Active Substance: ATEZOLIZUMAB
     Indication: PLASMA CELL MYELOMA
     Dosage: ON 12/DEC/2018, HE RECEIVED THE MOST RECENT DOSE OF ATEZOLIZUMAB PRIOR TO AE ONSET.
     Route: 042
     Dates: start: 20181114
  2. DIOSMECTITE [Concomitant]
     Active Substance: MONTMORILLONITE
     Dosage: DOSE: 1 OTHER
     Route: 048
     Dates: start: 20181114
  3. ERYTHROMYCINE [Concomitant]
     Active Substance: ERYTHROMYCIN
     Indication: DERMATITIS ACNEIFORM
     Route: 062
     Dates: start: 20181122
  4. DOXYCYCLINE. [Concomitant]
     Active Substance: DOXYCYCLINE
     Indication: DERMATITIS ACNEIFORM
     Route: 048
     Dates: start: 20181219
  5. LEVOFLOXACINE [Concomitant]
     Active Substance: LEVOFLOXACIN
     Indication: INFLUENZA LIKE ILLNESS
     Route: 048
     Dates: start: 20181124, end: 20181201
  6. VALACICLOVIR [Concomitant]
     Active Substance: VALACYCLOVIR HYDROCHLORIDE
     Route: 048
     Dates: start: 20170102
  7. METOCLOPRAMIDE. [Concomitant]
     Active Substance: METOCLOPRAMIDE
     Route: 065
     Dates: start: 20181114
  8. COBIMETINIB. [Suspect]
     Active Substance: COBIMETINIB
     Indication: PLASMA CELL MYELOMA
     Dosage: ON 01/JAN/2019, HE RECEIVED THE MOST RECENT DOSE OF COBIMETINIB (40MG)
     Route: 048
     Dates: start: 20181114
  9. RACECADOTRIL [Concomitant]
     Active Substance: RACECADOTRIL
     Route: 048
     Dates: start: 20181114
  10. VENETOCLAX. [Suspect]
     Active Substance: VENETOCLAX
     Indication: PLASMA CELL MYELOMA
     Dosage: ON 01/JAN/2019, HE RECEIVED THE MOST RECENT DOSE OF  VENETOCLAX (800MG)
     Route: 048
     Dates: start: 20181114
  11. ATOVAQUONE. [Concomitant]
     Active Substance: ATOVAQUONE
     Route: 048
     Dates: start: 20170102

REACTIONS (1)
  - Ejection fraction decreased [Recovered/Resolved]

NARRATIVE: CASE EVENT DATE: 20181219
